FAERS Safety Report 5162270-4 (Version None)
Quarter: 2006Q4

REPORT INFORMATION
  Report Type: 
  Country: None (occurrence: None)
  Receive Date: 20061121
  Receipt Date: 20061113
  Transmission Date: 20070319
  Serious: Yes (Death)
  Sender: FDA-Public Use
  Company Number: HQ3086401NOV2000

PATIENT
  Age: 63 Year
  Sex: Male

DRUGS (20)
  1. ETODOLAC [Suspect]
     Indication: RHEUMATOID ARTHRITIS
     Dosage: 300 MG 3X PER 1 DAY, ORAL
     Route: 048
     Dates: start: 19900101
  2. VASOTEC [Concomitant]
  3. ELDEPRYL [Concomitant]
  4. SINEMET [Concomitant]
  5. PREDNISONE TAB [Concomitant]
  6. NITROSTAT [Concomitant]
  7. NITRO-DUR [Concomitant]
  8. METHOTREXATE [Concomitant]
  9. TRAZODONE HCL [Concomitant]
  10. FOLIC ACID [Concomitant]
  11. TRIHEXYPHENIDYL HCL [Concomitant]
  12. REQUIP [Concomitant]
  13. LEVSIN (HYOSCYAMINE SULFATE) [Concomitant]
  14. AZATHIOPRINE [Concomitant]
  15. SERZONE [Concomitant]
  16. HYDROCHLOROTHIAZIDE [Concomitant]
  17. SINEMET - SLOW RELEASE (CARBIDOPA/LEVODOPA) [Concomitant]
  18. COMTAN [Concomitant]
  19. DITROPAN [Concomitant]
  20. NAPROXEN [Concomitant]

REACTIONS (7)
  - ASTHENIA [None]
  - ASTHMA [None]
  - DIZZINESS [None]
  - EMPHYSEMA [None]
  - HYPOTENSION [None]
  - PALLOR [None]
  - RESPIRATORY ARREST [None]
